FAERS Safety Report 24748442 (Version 1)
Quarter: 2024Q4

REPORT INFORMATION
  Report Type: Spontaneous
  Country: CN (occurrence: CN)
  Receive Date: 20241218
  Receipt Date: 20241218
  Transmission Date: 20250114
  Serious: Yes (Hospitalization, Other)
  Sender: BAXTER
  Company Number: None

PATIENT
  Age: 1 Year
  Sex: Male
  Weight: 10 kg

DRUGS (7)
  1. CYCLOPHOSPHAMIDE [Suspect]
     Active Substance: CYCLOPHOSPHAMIDE
     Indication: Neuroblastoma
     Dosage: 0.36G, ONCE, DILUTED WITH (4: 1) GLUCOSE AND SODIUM CHLORIDE INJECTION 250ML
     Route: 041
     Dates: start: 20241010, end: 20241010
  2. DEXTROSE [Suspect]
     Active Substance: DEXTROSE MONOHYDRATE
     Indication: Medication dilution
     Dosage: (5%) 250 ML, ONCE, USED TO DILUTE 200 MG EPIRUBICIN HYDROCHLORIDE
     Route: 041
     Dates: start: 20241010, end: 20241010
  3. DEXTROSE [Suspect]
     Active Substance: DEXTROSE MONOHYDRATE
     Dosage: 4: 1 GLUCOSE AND (0.9%) 250 ML, ONE TIME IN ONE DAY, USED TO DILUTE 00.36G CYCLOPHOSPHAMIDE
     Route: 041
     Dates: start: 20241010, end: 20241010
  4. SODIUM CHLORIDE [Suspect]
     Active Substance: SODIUM CHLORIDE
     Indication: Medication dilution
     Dosage: (0.9%) 250 ML, ONCE, USED TO DILUTE 11 MG EPIRUBICIN HYDROCHLORIDE
     Route: 041
     Dates: start: 20241010, end: 20241010
  5. SODIUM CHLORIDE [Suspect]
     Active Substance: SODIUM CHLORIDE
     Dosage: 4: 1 GLUCOSE AND (0.9%) 250 ML, ONE TIME IN ONE DAY, USED TO DILUTE 00.36G CYCLOPHOSPHAMIDE
     Route: 041
     Dates: start: 20241010, end: 20241010
  6. CARBOPLATIN [Suspect]
     Active Substance: CARBOPLATIN
     Indication: Neuroblastoma
     Dosage: 200 MG, ONCE, DILUTED WITH 250 ML OF 0.9% SODIUM CHLORIDE
     Route: 041
     Dates: start: 20241010, end: 20241010
  7. EPIRUBICIN [Suspect]
     Active Substance: EPIRUBICIN
     Indication: Neuroblastoma
     Dosage: 11 MG, ONCE, DILUTED WITH 250 ML OF 0.9% SODIUM CHLORIDE
     Route: 041
     Dates: start: 20241010, end: 20241010

REACTIONS (1)
  - Myelosuppression [Recovering/Resolving]

NARRATIVE: CASE EVENT DATE: 20241022
